FAERS Safety Report 23296489 (Version 1)
Quarter: 2023Q4

REPORT INFORMATION
  Report Type: Spontaneous
  Country: US (occurrence: None)
  Receive Date: 20231214
  Receipt Date: 20231214
  Transmission Date: 20240110
  Serious: No
  Sender: FDA-Public Use
  Company Number: None

PATIENT
  Age: 50 Year

DRUGS (1)
  1. OXYCODONE HYDROCHLORIDE [Suspect]
     Active Substance: OXYCODONE HYDROCHLORIDE
     Indication: Ovarian cancer
     Dosage: FREQUENCY : EVERY 4 HOURS;?

REACTIONS (1)
  - Euphoric mood [None]

NARRATIVE: CASE EVENT DATE: 20231213
